FAERS Safety Report 4390023-3 (Version None)
Quarter: 2004Q2

REPORT INFORMATION
  Report Type: 
  Country: None (occurrence: None)
  Receive Date: 20040630
  Receipt Date: 20040614
  Transmission Date: 20050107
  Serious: Yes (Life-Threatening, Hospitalization, Other)
  Sender: FDA-Public Use
  Company Number: 8006044

PATIENT
  Age: 32 Year
  Sex: Female
  Weight: 52 kg

DRUGS (7)
  1. KEPPRA [Suspect]
     Indication: GRAND MAL CONVULSION
     Dosage: 250 MG PO
     Route: 048
     Dates: start: 20030101, end: 20030101
  2. KEPPRA [Suspect]
     Indication: PARTIAL SEIZURES
     Dosage: 250 MG PO
     Route: 048
     Dates: start: 20030101, end: 20030101
  3. KEPPRA [Suspect]
     Indication: PARTIAL SEIZURES
     Dosage: 500 MG PO
     Route: 048
     Dates: start: 20030101, end: 20030101
  4. KEPPRA [Suspect]
     Indication: GRAND MAL CONVULSION
     Dosage: 500 MG PO
     Route: 048
     Dates: start: 20031001
  5. KEPPRA [Suspect]
     Indication: PARTIAL SEIZURES
     Dosage: 500 MG PO
     Route: 048
     Dates: start: 20031001
  6. LAMOTRIGINE [Concomitant]
  7. FERRO DUODENAL ^SANOL^ [Concomitant]

REACTIONS (5)
  - BODY TEMPERATURE INCREASED [None]
  - EYELID OEDEMA [None]
  - HYPOGAMMAGLOBULINAEMIA [None]
  - PNEUMONIA [None]
  - PRURITUS GENERALISED [None]
